FAERS Safety Report 9296313 (Version 4)
Quarter: 2014Q2

REPORT INFORMATION
  Report Type: Report from Study
  Country: JP (occurrence: JP)
  Receive Date: 20130517
  Receipt Date: 20140415
  Transmission Date: 20141212
  Serious: Yes (Other)
  Sender: FDA-Public Use
  Company Number: JP-EISAI INC-E2020-12348-CLI-JP

PATIENT
  Age: 87 Year
  Sex: Female
  Weight: 39.8 kg

DRUGS (11)
  1. DONEPEZIL [Suspect]
     Indication: DEMENTIA ALZHEIMER^S TYPE
     Dosage: DOUBLE BLIND
     Route: 048
     Dates: start: 20120822, end: 201209
  2. DONEPEZIL [Suspect]
     Dosage: DOUBLE BLIND
     Route: 048
     Dates: start: 201209, end: 20130516
  3. ROZEREM [Concomitant]
     Indication: INSOMNIA
     Route: 048
     Dates: start: 20120130, end: 20130515
  4. HANGEBYAKUJUTSUTEM MATO [Concomitant]
     Indication: DIZZINESS
     Route: 048
     Dates: start: 20080606
  5. SOKEIKKETSUTO [Concomitant]
     Indication: BACK PAIN
     Route: 048
     Dates: start: 20081125
  6. VASOLAN [Concomitant]
     Indication: SUPRAVENTRICULAR TACHYCARDIA
     Route: 048
     Dates: start: 20100528
  7. SHINLUCK [Concomitant]
     Indication: CONSTIPATION
     Route: 048
     Dates: start: 20111222
  8. STAYBLA [Concomitant]
     Indication: POLLAKIURIA
     Route: 048
     Dates: start: 20110427
  9. SUZUTOLON [Concomitant]
     Indication: DIZZINESS
     Route: 048
     Dates: start: 20080606
  10. AM [Concomitant]
     Indication: DYSPEPSIA
     Route: 048
     Dates: start: 20080606
  11. MAGNESIUM OXIDE [Concomitant]
     Indication: CONSTIPATION
     Route: 048
     Dates: start: 20120530

REACTIONS (1)
  - Aspiration [Recovered/Resolved]
